FAERS Safety Report 9162947 (Version 1)
Quarter: 2013Q1

REPORT INFORMATION
  Report Type: Spontaneous
  Country: US (occurrence: None)
  Receive Date: 20130313
  Receipt Date: 20130313
  Transmission Date: 20140127
  Serious: Yes (Other)
  Sender: FDA-Public Use
  Company Number: None

PATIENT
  Sex: Female
  Weight: 73 kg

DRUGS (4)
  1. NTG NATURALS MULTI-VIT NOURISH MST 3OZ [Suspect]
     Indication: DRY SKIN
     Dosage: 1/2 INCH, 2XDAY, TOPICAL
     Dates: start: 201301, end: 20130201
  2. MELOXICAM [Concomitant]
  3. TYLENOL [Concomitant]
  4. VITAMIN D3 [Concomitant]

REACTIONS (8)
  - Eye swelling [None]
  - Swelling face [None]
  - Erythema [None]
  - Dyspnoea [None]
  - Pruritus [None]
  - Abdominal distension [None]
  - Sinusitis [None]
  - Refusal of treatment by patient [None]
